FAERS Safety Report 14962816 (Version 1)
Quarter: 2018Q2

REPORT INFORMATION
  Report Type: Spontaneous
  Country: US (occurrence: US)
  Receive Date: 20180510
  Receipt Date: 20180510
  Transmission Date: 20180711
  Serious: Yes (Other)
  Sender: FDA-Public Use
  Company Number: None

PATIENT
  Age: 65 Year
  Sex: Female
  Weight: 133.2 kg

DRUGS (1)
  1. XIIDRA [Suspect]
     Active Substance: LIFITEGRAST
     Indication: DRY EYE
     Dosage: ?          QUANTITY:20 GTT DROP(S);?
     Route: 047
     Dates: start: 20180507

REACTIONS (3)
  - Nausea [None]
  - Headache [None]
  - Dysgeusia [None]

NARRATIVE: CASE EVENT DATE: 20180507
